FAERS Safety Report 8152766-5 (Version None)
Quarter: 2012Q1

REPORT INFORMATION
  Report Type: 
  Country: None (occurrence: None)
  Receive Date: 20120215
  Receipt Date: 20120207
  Transmission Date: 20120608
  Serious: Yes (Other)
  Sender: FDA-Public Use
  Company Number: DSA_55039_2012

PATIENT
  Sex: Female
  Weight: 52.6173 kg

DRUGS (5)
  1. BOTOX [Concomitant]
  2. CLONAZEPAM [Concomitant]
  3. LEXAPRO [Concomitant]
  4. XENAZINE [Suspect]
     Indication: TARDIVE DYSKINESIA
     Dosage: (12.5 MG BID ORAL)
     Route: 048
     Dates: start: 20111228
  5. ASPIRIN [Concomitant]

REACTIONS (4)
  - ANXIETY [None]
  - PALPITATIONS [None]
  - TARDIVE DYSKINESIA [None]
  - WEIGHT DECREASED [None]
